FAERS Safety Report 22915796 (Version 3)
Quarter: 2024Q2

REPORT INFORMATION
  Report Type: Spontaneous
  Country: JP (occurrence: JP)
  Receive Date: 20230907
  Receipt Date: 20240530
  Transmission Date: 20240715
  Serious: Yes (Hospitalization, Other)
  Sender: FDA-Public Use
  Company Number: JP-TAKEDA-2023TUS086058

PATIENT
  Age: 17 Year
  Sex: Female
  Weight: 44 kg

DRUGS (2)
  1. INTUNIV [Suspect]
     Active Substance: GUANFACINE HYDROCHLORIDE
     Indication: Attention deficit hyperactivity disorder
     Dosage: 150 MILLIGRAM, QD
     Route: 048
  2. LUNESTA [Suspect]
     Active Substance: ESZOPICLONE
     Indication: Product used for unknown indication
     Dosage: 7 MILLIGRAM
     Route: 048

REACTIONS (7)
  - Hypotension [Unknown]
  - Bradycardia [Recovering/Resolving]
  - Syncope [Recovering/Resolving]
  - Electrocardiogram T wave peaked [Recovered/Resolved]
  - Electrocardiogram QT prolonged [Recovering/Resolving]
  - Somnolence [Recovering/Resolving]
  - Intentional overdose [Unknown]
